FAERS Safety Report 9143526 (Version 1)
Quarter: 2013Q1

REPORT INFORMATION
  Report Type: Report from Study
  Country: AT (occurrence: AT)
  Receive Date: 20130306
  Receipt Date: 20130306
  Transmission Date: 20140127
  Serious: Yes (Hospitalization)
  Sender: FDA-Public Use
  Company Number: AT-ROCHE-1198311

PATIENT
  Age: 64 Year
  Sex: Female
  Weight: 44.6 kg

DRUGS (6)
  1. TRASTUZUMAB [Suspect]
     Indication: GASTRIC CANCER
     Route: 042
     Dates: start: 20120814
  2. TRASTUZUMAB [Suspect]
     Dosage: DATE OF LAST DOSE PRIOR TO SAE- 04/SEP/2012
     Route: 042
     Dates: end: 20120910
  3. TRASTUZUMAB [Suspect]
     Route: 042
     Dates: start: 20121108
  4. CAPECITABINE [Suspect]
     Indication: GASTRIC CANCER
     Dosage: DATE OF LAST DOSE PRIOR TO SAE- /SEP/2012
     Route: 048
     Dates: start: 20120814, end: 20120910
  5. CISPLATIN [Suspect]
     Indication: GASTRIC CANCER
     Dosage: DATE OF LAST DOSE PRIOR TO SAE- 04/SEP/2012
     Route: 042
     Dates: start: 20120814, end: 20120910
  6. EUTHYROX [Concomitant]
     Route: 065

REACTIONS (1)
  - Mucosal inflammation [Recovered/Resolved with Sequelae]
